FAERS Safety Report 9079977 (Version 1)
Quarter: 2013Q1

REPORT INFORMATION
  Report Type: Spontaneous
  Country: US (occurrence: US)
  Receive Date: 20130130
  Receipt Date: 20130130
  Transmission Date: 20140127
  Serious: Yes (Other)
  Sender: FDA-Public Use
  Company Number: US-UCBSA-076906

PATIENT
  Sex: 0

DRUGS (2)
  1. VIMPAT [Suspect]
     Dosage: UNKNOWN DOSE, FOR LAST APPROXIMATELY TWO YEARS
  2. KEPPRA [Suspect]
     Dosage: UNKNOWN DOSE, FOR MANY YEARS

REACTIONS (1)
  - Osteoarthritis [Unknown]
